FAERS Safety Report 23667603 (Version 4)
Quarter: 2025Q1

REPORT INFORMATION
  Report Type: Spontaneous
  Country: US (occurrence: US)
  Receive Date: 20240325
  Receipt Date: 20250103
  Transmission Date: 20250409
  Serious: Yes (Other)
  Sender: BRISTOL-MYERS SQUIBB COMPANY
  Company Number: US-BRISTOL-MYERS SQUIBB COMPANY-2024-046917

PATIENT
  Age: 86 Year
  Sex: Female
  Weight: 67.13 kg

DRUGS (3)
  1. POMALYST [Suspect]
     Active Substance: POMALIDOMIDE
     Indication: Plasma cell myeloma
     Route: 048
  2. POMALYST [Suspect]
     Active Substance: POMALIDOMIDE
     Route: 048
  3. POMALYST [Suspect]
     Active Substance: POMALIDOMIDE

REACTIONS (5)
  - Dizziness [Not Recovered/Not Resolved]
  - Product prescribing issue [Unknown]
  - Asthenia [Unknown]
  - Malaise [Not Recovered/Not Resolved]
  - Plasma cell myeloma [Unknown]
